FAERS Safety Report 5829443 (Version 3)
Quarter: 2020Q3

REPORT INFORMATION
  Report Type: Report from Study
  Country: ES (occurrence: ES)
  Receive Date: 20050701
  Receipt Date: 20060331
  Transmission Date: 20201104
  Serious: Yes (Death, Life-Threatening)
  Sender: FDA-Public Use
  Company Number: ES-JNJFOC-20050603475

PATIENT
  Age: 60 Year
  Sex: Male
  Weight: 90 kg

DRUGS (9)
  1. VITAMIN K [Concomitant]
     Route: 042
  2. DESMOPRESSIN [Concomitant]
     Active Substance: DESMOPRESSIN
     Route: 042
  3. VALPROATE SODIUM. [Concomitant]
     Active Substance: VALPROATE SODIUM
     Route: 042
  4. REOPRO [Suspect]
     Active Substance: ABCIXIMAB
     Route: 042
  5. MORPHINE HYDROCHLORIDE [Concomitant]
     Active Substance: MORPHINE HYDROCHLORIDE
     Route: 042
  6. REOPRO [Suspect]
     Active Substance: ABCIXIMAB
     Route: 042
  7. MANNITOL. [Concomitant]
     Active Substance: MANNITOL
     Route: 042
  8. METOCLOPRAMIDE. [Concomitant]
     Active Substance: METOCLOPRAMIDE
     Route: 042
  9. OMEPRAZOLE. [Concomitant]
     Active Substance: OMEPRAZOLE
     Route: 042

REACTIONS (2)
  - Haemorrhagic transformation stroke [Fatal]
  - Drug interaction [None]

NARRATIVE: CASE EVENT DATE: 20050610
